FAERS Safety Report 5694435-7 (Version None)
Quarter: 2008Q2

REPORT INFORMATION
  Report Type: 
  Country: None (occurrence: None)
  Receive Date: 20080404
  Receipt Date: 20080331
  Transmission Date: 20081010
  Serious: Yes (Disabling)
  Sender: FDA-Public Use
  Company Number: GB-BRISTOL-MYERS SQUIBB COMPANY-14132211

PATIENT
  Weight: 101 kg

DRUGS (4)
  1. IRBESARTAN [Suspect]
     Indication: HYPERTENSION
     Dosage: DOSE INCREASED TO 150MG FROM JUL2007-19SEP07
     Route: 048
     Dates: start: 20070501, end: 20070919
  2. AMLODIPINE [Concomitant]
     Indication: HYPERTENSION
     Route: 048
  3. ACETYLSALICYLIC ACID SRT [Concomitant]
     Indication: VASCULITIS
     Route: 048
  4. ATORVASTATIN [Concomitant]
     Route: 048

REACTIONS (1)
  - ALVEOLITIS ALLERGIC [None]
